FAERS Safety Report 8634076 (Version 6)
Quarter: 2013Q4

REPORT INFORMATION
  Report Type: Spontaneous
  Country: US (occurrence: None)
  Receive Date: 20120613
  Receipt Date: 20131031
  Transmission Date: 20140711
  Serious: Yes (Hospitalization)
  Sender: FDA-Public Use
  Company Number: AUR-APL-2012-02575

PATIENT
  Age: 56 Year
  Sex: Female
  Weight: 85.7 kg

DRUGS (8)
  1. HYDROCHLOROTHIAZIDE [Suspect]
     Indication: HYPERTENSION
     Route: 048
     Dates: start: 20111021
  2. LISINOPRIL [Suspect]
     Indication: HYPERTENSION
     Dosage: (20 MG, 1 D), ORAL
     Route: 048
     Dates: start: 20081021
  3. AMLODIPINE (AMLODIPINE) [Suspect]
     Indication: HYPERTENSION
     Dosage: 60 MG/M2, DAY 1 OF C# 5-8 (1 IN 21 D),  INTRAVENOUS
     Route: 048
     Dates: start: 20080303
  4. DOXORUBICIN [Suspect]
     Indication: BREAST CANCER
     Dosage: 60 MG/M2, DAY 1 OF C 3 508 EVERY 21 DAYS, INTRAVENOUS
     Route: 042
     Dates: start: 20120327, end: 20120508
  5. CYCLOPHOSPHAMIDE (CYCLOPHOSPHAMIDE) [Suspect]
     Indication: BREAST CANCER
     Dosage: 600 MG/M2, DAY 1 OF C 5-8 EVERY 21 DAYS, INTRAVENOUS
     Route: 042
     Dates: start: 20120327, end: 20120508
  6. NERATINIB [Suspect]
     Indication: BREAST CANCER
     Route: 048
     Dates: start: 20111212, end: 20120326
  7. PACLITAXEL (PACLITAXEL) [Suspect]
     Indication: BREAST CANCER
     Route: 042
     Dates: start: 20111212, end: 20120313
  8. ZANTAC (RANITIDINE) [Concomitant]

REACTIONS (10)
  - Breast cancer female [None]
  - Dizziness [None]
  - Electrocardiogram ST-T change [None]
  - Blood potassium decreased [None]
  - Dehydration [None]
  - Hypotension [None]
  - Cardiac enzymes increased [None]
  - Oestrogen receptor assay positive [None]
  - Progesterone receptor assay positive [None]
  - Hypokalaemia [None]
